FAERS Safety Report 5718007-0 (Version None)
Quarter: 2008Q2

REPORT INFORMATION
  Report Type: 
  Country: None (occurrence: None)
  Receive Date: 20080425
  Receipt Date: 20080416
  Transmission Date: 20081010
  Serious: Yes (Hospitalization)
  Sender: FDA-Public Use
  Company Number: B0517047A

PATIENT
  Age: 39 Year
  Sex: Female

DRUGS (13)
  1. AUGMENTIN '125' [Suspect]
     Indication: DRUG USE FOR UNKNOWN INDICATION
     Route: 048
     Dates: start: 20080220, end: 20080222
  2. ACETAMINOPHEN W/ CODEINE [Suspect]
     Indication: FACIAL PAIN
     Route: 048
     Dates: start: 20080121, end: 20080121
  3. HOMEOPATHIC MEDICATION [Suspect]
     Indication: NASOPHARYNGITIS
     Route: 055
     Dates: start: 20080101, end: 20080101
  4. SURGICEL [Suspect]
     Indication: DRUG USE FOR UNKNOWN INDICATION
     Route: 045
     Dates: start: 20080207, end: 20080301
  5. ACETAMINOPHEN AND TRAMADOL HCL [Suspect]
     Indication: FACIAL PAIN
     Route: 048
     Dates: start: 20080121, end: 20080121
  6. OSCILLOCOCCINUM [Concomitant]
     Indication: NASOPHARYNGITIS
     Route: 065
     Dates: start: 20080101
  7. INFLUENZINUM [Concomitant]
     Indication: NASOPHARYNGITIS
     Route: 065
     Dates: start: 20080101
  8. SOLUTRICINE [Concomitant]
     Route: 065
  9. HEXTRIL [Concomitant]
     Route: 065
  10. TAVANIC [Concomitant]
     Dosage: 1TAB PER DAY
     Route: 065
     Dates: start: 20080125, end: 20080129
  11. BETADINE [Concomitant]
     Indication: SINUSITIS
     Route: 065
     Dates: start: 20080207
  12. XYLOCAINE [Concomitant]
     Indication: SINUSITIS
     Route: 065
     Dates: start: 20080207
  13. EFFERALGAN CODEINE [Concomitant]
     Indication: DRUG USE FOR UNKNOWN INDICATION
     Route: 065

REACTIONS (12)
  - ANGIOEDEMA [None]
  - DYSPHAGIA [None]
  - DYSPHONIA [None]
  - EYELID OEDEMA [None]
  - FACE OEDEMA [None]
  - LIP OEDEMA [None]
  - LOCALISED OEDEMA [None]
  - MALAISE [None]
  - PAINFUL RESPIRATION [None]
  - RASH PRURITIC [None]
  - SINUSITIS [None]
  - VISION BLURRED [None]
